FAERS Safety Report 7153699 (Version 12)
Quarter: 2014Q2

REPORT INFORMATION
  Report Type: Report from Study
  Country: CA (occurrence: CA)
  Receive Date: 20091020
  Receipt Date: 20140623
  Transmission Date: 20141212
  Serious: Yes (Other)
  Sender: FDA-Public Use
  Company Number: PHHY2009CA39789

PATIENT
  Age: 68 Year
  Sex: Female

DRUGS (3)
  1. SANDOSTATIN LAR [Suspect]
     Indication: DIARRHOEA
     Dosage: 20 MG, EVERY 4 WEEKS
     Route: 030
     Dates: start: 20090911
  2. SANDOSTATIN LAR [Suspect]
     Indication: OFF LABEL USE
     Dosage: 30 MG, QMO
     Route: 030
  3. GLIVEC [Concomitant]
     Dosage: UNK UKN, UNK

REACTIONS (12)
  - Angina pectoris [Unknown]
  - Chest discomfort [Unknown]
  - Muscle spasms [Unknown]
  - Insomnia [Unknown]
  - Blood pressure diastolic decreased [Unknown]
  - Kidney infection [Unknown]
  - Decreased appetite [Unknown]
  - Diarrhoea [Not Recovered/Not Resolved]
  - Abdominal pain [Unknown]
  - Weight decreased [Unknown]
  - Back pain [Unknown]
  - Blood pressure systolic increased [Unknown]
